FAERS Safety Report 7386169-8 (Version None)
Quarter: 2011Q1

REPORT INFORMATION
  Report Type: 
  Country: None (occurrence: None)
  Receive Date: 20110323
  Receipt Date: 20110314
  Transmission Date: 20110831
  Serious: Yes (Other)
  Sender: FDA-Public Use
  Company Number: 2010SP032661

PATIENT
  Age: 25 Year
  Sex: Female
  Weight: 51 kg

DRUGS (3)
  1. GRACIAL (DESOGESTREL/ ETHINYLESTRADIOL /00570801/) [Suspect]
     Indication: CONTRACEPTION
     Dosage: UNK, PO
     Route: 048
     Dates: start: 20060101
  2. PANTOGAR [Concomitant]
  3. UNSPECIFRIED EMERGENCY CONTRACEPTIVE PILL [Concomitant]

REACTIONS (8)
  - FALL [None]
  - DRUG INTERACTION [None]
  - TREATMENT NONCOMPLIANCE [None]
  - WITHDRAWAL BLEED [None]
  - FRACTURED COCCYX [None]
  - DRUG DOSE OMISSION [None]
  - VOMITING [None]
  - GASTRITIS [None]
